FAERS Safety Report 4321413-2 (Version None)
Quarter: 2004Q1

REPORT INFORMATION
  Report Type: 
  Country: None (occurrence: None)
  Receive Date: 20040322
  Receipt Date: 20030421
  Transmission Date: 20041129
  Serious: No
  Sender: FDA-Public Use
  Company Number: US-BRISTOL-MYERS SQUIBB COMPANY-12253829

PATIENT
  Age: 33 Year
  Sex: Female

DRUGS (3)
  1. MONISTAT [Suspect]
     Indication: VAGINAL MYCOSIS
     Route: 067
     Dates: start: 20030407, end: 20030407
  2. MONISTAT 3 [Suspect]
     Route: 067
     Dates: start: 20030310, end: 20030312
  3. DIFLUCAN [Concomitant]

REACTIONS (2)
  - RASH [None]
  - URTICARIA [None]
